FAERS Safety Report 5675228-3 (Version None)
Quarter: 2008Q1

REPORT INFORMATION
  Report Type: 
  Country: None (occurrence: None)
  Receive Date: 20080320
  Receipt Date: 20080314
  Transmission Date: 20080703
  Serious: Yes (Hospitalization)
  Sender: FDA-Public Use
  Company Number: US-GILEAD-2008-0015740

PATIENT
  Sex: Female

DRUGS (6)
  1. LETAIRIS [Suspect]
     Indication: PULMONARY HYPERTENSION
  2. FUROSEMIDE [Concomitant]
  3. ENALAPRIL MALEATE [Concomitant]
  4. CARTIA XT [Concomitant]
  5. ALPRAZOLAM [Concomitant]
  6. FORTICAL [Concomitant]

REACTIONS (2)
  - PNEUMONIA [None]
  - PULMONARY HYPERTENSION [None]
